FAERS Safety Report 6114245-6 (Version None)
Quarter: 2009Q1

REPORT INFORMATION
  Report Type: 
  Country: None (occurrence: None)
  Receive Date: 20090312
  Receipt Date: 20080908
  Transmission Date: 20090719
  Serious: No
  Sender: FDA-Public Use
  Company Number: US-ABBOTT-08P-163-0474934-00

PATIENT

DRUGS (5)
  1. DEPAKOTE [Suspect]
     Indication: DRUG USE FOR UNKNOWN INDICATION
  2. CLOZAPINE [Interacting]
     Indication: DRUG USE FOR UNKNOWN INDICATION
  3. CLOZAPINE [Interacting]
  4. CLOZAPINE [Interacting]
  5. CLOZAPINE [Interacting]

REACTIONS (2)
  - DRUG INTERACTION [None]
  - DRUG LEVEL INCREASED [None]
